FAERS Safety Report 8144758-7 (Version None)
Quarter: 2012Q1

REPORT INFORMATION
  Report Type: 
  Country: None (occurrence: None)
  Receive Date: 20120217
  Receipt Date: 20120206
  Transmission Date: 20120608
  Serious: Yes (Hospitalization, Other)
  Sender: FDA-Public Use
  Company Number: US-ACTELION-A-US2012-60793

PATIENT

DRUGS (9)
  1. COUMADIN [Concomitant]
  2. FLOLAN [Concomitant]
  3. LASIX [Concomitant]
  4. SERTRALINE HYDROCHLORIDE [Concomitant]
  5. TRACLEER [Suspect]
     Indication: PULMONARY ARTERIAL HYPERTENSION
     Dosage: 125 MG, BID
     Route: 048
     Dates: start: 20020401, end: 20110404
  6. OMEPRAZOLE [Concomitant]
  7. REVATIO [Concomitant]
  8. HYDROCODONE [Concomitant]
  9. ALPRAZOLAM [Concomitant]

REACTIONS (3)
  - PANCREATIC NEOPLASM [None]
  - CHEST PAIN [None]
  - LIVER FUNCTION TEST ABNORMAL [None]
